FAERS Safety Report 4646261-5 (Version None)
Quarter: 2005Q2

REPORT INFORMATION
  Report Type: 
  Country: None (occurrence: None)
  Receive Date: 20050427
  Receipt Date: 20050425
  Transmission Date: 20051028
  Serious: Yes (Other)
  Sender: FDA-Public Use
  Company Number: GB-ROCHE-402844

PATIENT
  Age: 41 Year
  Sex: Female

DRUGS (10)
  1. XENICAL [Suspect]
     Indication: DRUG USE FOR UNKNOWN INDICATION
     Route: 048
     Dates: start: 20050303, end: 20050315
  2. AMISULPRIDE [Interacting]
     Route: 065
  3. OLANZAPINE [Interacting]
     Dosage: ONE EVERY NIGHT.
     Route: 065
  4. ACAMPROSATE [Concomitant]
  5. DISULFIRAM [Concomitant]
  6. ZOPICLONE [Concomitant]
     Dosage: ONE AT NIGHT.
  7. VALPROATE SODIUM [Concomitant]
     Dosage: ONE IN THE MORNING, TWO ON UNSPECIFIED TIME.
  8. THIAMINE [Concomitant]
  9. VITAMIN B COMPLEX CAP [Concomitant]
  10. TRAZODONE HCL [Concomitant]

REACTIONS (4)
  - DISEASE RECURRENCE [None]
  - DRUG INTERACTION [None]
  - PSYCHOTIC DISORDER [None]
  - SCHIZOAFFECTIVE DISORDER [None]
